FAERS Safety Report 10665300 (Version 2)
Quarter: 2014Q4

REPORT INFORMATION
  Report Type: Report from Study
  Country: US (occurrence: US)
  Receive Date: 20141219
  Receipt Date: 20141219
  Transmission Date: 20150529
  Serious: Yes (Hospitalization, Other)
  Sender: FDA-Public Use
  Company Number: US-GILEAD-2014-0115066

PATIENT
  Age: 60 Year
  Sex: Female

DRUGS (2)
  1. RIBAVIRIN. [Concomitant]
     Active Substance: RIBAVIRIN
  2. SOFOSBUVIR [Suspect]
     Active Substance: SOFOSBUVIR
     Indication: CHRONIC HEPATITIS C
     Dosage: 400 MG, UNK
     Route: 065
     Dates: start: 20140517, end: 201409

REACTIONS (6)
  - Peripheral swelling [Unknown]
  - Blood pressure decreased [Unknown]
  - Swelling [Unknown]
  - Unevaluable event [Unknown]
  - Hepatic cancer [Unknown]
  - Rash [Unknown]
